FAERS Safety Report 5306333-9 (Version None)
Quarter: 2007Q2

REPORT INFORMATION
  Report Type: 
  Country: None (occurrence: None)
  Receive Date: 20070424
  Receipt Date: 20070416
  Transmission Date: 20071010
  Serious: Yes (Hospitalization)
  Sender: FDA-Public Use
  Company Number: FR-BOEHRINGER INGELHEIM PHARMACEUTICALS, INC.-2007-FF-00476FF

PATIENT
  Age: 17 Year
  Sex: Female

DRUGS (2)
  1. COMBIVENT [Suspect]
     Dosage: 100 ?G/20 ?G/DOSE
     Route: 055
     Dates: start: 20050615, end: 20070316
  2. SERETIDE [Concomitant]
     Dosage: 250/50 ?G/DOSE
     Route: 055
     Dates: start: 20050615

REACTIONS (1)
  - DYSKINESIA [None]
